FAERS Safety Report 18904257 (Version 1)
Quarter: 2021Q1

REPORT INFORMATION
  Report Type: Spontaneous
  Country: US (occurrence: US)
  Receive Date: 20210216
  Receipt Date: 20210216
  Transmission Date: 20210420
  Serious: Yes (Disabling)
  Sender: FDA-Public Use
  Company Number: None

PATIENT
  Sex: Female
  Weight: 43.59 kg

DRUGS (5)
  1. MIRENA [Suspect]
     Active Substance: LEVONORGESTREL
     Dates: start: 20190719, end: 20200831
  2. EPIPEN [Concomitant]
     Active Substance: EPINEPHRINE
  3. MONTELUKAST SODIUM. [Concomitant]
     Active Substance: MONTELUKAST SODIUM
  4. CLARITIN [Concomitant]
     Active Substance: LORATADINE
  5. ALBUTEROL SULFATE. [Concomitant]
     Active Substance: ALBUTEROL SULFATE

REACTIONS (13)
  - Feeling abnormal [None]
  - Alcohol intolerance [None]
  - Constipation [None]
  - Aphasia [None]
  - Amnesia [None]
  - Hypotension [None]
  - Disturbance in attention [None]
  - Urticaria [None]
  - Premenstrual dysphoric disorder [None]
  - Fatigue [None]
  - Food allergy [None]
  - Tonsillar hypertrophy [None]
  - Presyncope [None]
